FAERS Safety Report 25687992 (Version 4)
Quarter: 2025Q3

REPORT INFORMATION
  Report Type: Report from Study
  Country: EU (occurrence: EU)
  Receive Date: 20250817
  Receipt Date: 20250910
  Transmission Date: 20251021
  Serious: Yes (Death, Hospitalization)
  Sender: ABBVIE
  Company Number: EU-ABBVIE-6184919

PATIENT
  Age: 62 Year
  Sex: Female

DRUGS (3)
  1. FOSCARBIDOPA\FOSLEVODOPA [Suspect]
     Active Substance: FOSCARBIDOPA\FOSLEVODOPA
     Indication: Parkinson^s disease
     Route: 058
     Dates: start: 20250108
  2. FOSCARBIDOPA\FOSLEVODOPA [Suspect]
     Active Substance: FOSCARBIDOPA\FOSLEVODOPA
     Route: 058
  3. FOSCARBIDOPA\FOSLEVODOPA [Suspect]
     Active Substance: FOSCARBIDOPA\FOSLEVODOPA
     Route: 058

REACTIONS (6)
  - Death [Fatal]
  - On and off phenomenon [Recovered/Resolved]
  - Hallucination [Unknown]
  - Seizure [Unknown]
  - Gastrointestinal infection [Unknown]
  - Hospitalisation [Recovered/Resolved]

NARRATIVE: CASE EVENT DATE: 20250101
